FAERS Safety Report 15903497 (Version 3)
Quarter: 2020Q2

REPORT INFORMATION
  Report Type: Spontaneous
  Country: US (occurrence: US)
  Receive Date: 20190203
  Receipt Date: 20200526
  Transmission Date: 20200713
  Serious: Yes (Death, Other)
  Sender: FDA-Public Use
  Company Number: US-TEVA-2019-US-1006134

PATIENT
  Sex: Male

DRUGS (3)
  1. OLANZAPINE. [Concomitant]
     Active Substance: OLANZAPINE
     Route: 048
  2. TRAZODONE [Concomitant]
     Active Substance: TRAZODONE HYDROCHLORIDE
     Indication: INSOMNIA
     Dosage: 1/2-2PILLS ORALLY AT BEDTIME AS NEE
     Route: 048
  3. HALOPERIDOL DECANOATE TEVA [Suspect]
     Active Substance: HALOPERIDOL DECANOATE
     Route: 030

REACTIONS (2)
  - Unresponsive to stimuli [Not Recovered/Not Resolved]
  - Myocardial infarction [Fatal]
